FAERS Safety Report 9214489 (Version 3)
Quarter: 2013Q2

REPORT INFORMATION
  Report Type: Spontaneous
  Country: US (occurrence: US)
  Receive Date: 20130405
  Receipt Date: 20130515
  Transmission Date: 20140414
  Serious: Yes (Hospitalization)
  Sender: FDA-Public Use
  Company Number: US-GILEAD-2013-0072854

PATIENT
  Sex: Female

DRUGS (4)
  1. LETAIRIS [Suspect]
     Indication: PULMONARY ARTERIAL HYPERTENSION
     Dosage: 10 MG, QD
     Dates: start: 20111219
  2. REMODULIN [Concomitant]
  3. REVATIO [Concomitant]
  4. COUMADIN                           /00014802/ [Concomitant]

REACTIONS (3)
  - Appendicitis perforated [Unknown]
  - Fall [Unknown]
  - Abdominal pain [Unknown]
